FAERS Safety Report 9877795 (Version 1)
Quarter: 2014Q1

REPORT INFORMATION
  Report Type: Spontaneous
  Country: CA (occurrence: CA)
  Receive Date: 20140206
  Receipt Date: 20140206
  Transmission Date: 20141002
  Serious: Yes (Hospitalization)
  Sender: FDA-Public Use
  Company Number: CA-INCYTE CORPORATION-2014IN000239

PATIENT
  Age: 70 Year
  Sex: Female

DRUGS (2)
  1. JAKAVI [Suspect]
     Indication: MYELOFIBROSIS
     Dosage: 15 MG, BID
     Dates: start: 201309
  2. JAKAVI [Suspect]
     Dosage: UNK,UNK,UNK
     Route: 065

REACTIONS (8)
  - Cough [Unknown]
  - Loss of consciousness [Unknown]
  - Chills [Unknown]
  - Splenomegaly [Unknown]
  - Pneumonia [Unknown]
  - Pyrexia [Unknown]
  - Platelet count decreased [Recovering/Resolving]
  - Neutrophil count decreased [Recovering/Resolving]
